FAERS Safety Report 7674220-7 (Version None)
Quarter: 2011Q3

REPORT INFORMATION
  Report Type: 
  Country: None (occurrence: None)
  Receive Date: 20110810
  Receipt Date: 20110728
  Transmission Date: 20111222
  Serious: Yes (Other)
  Sender: FDA-Public Use
  Company Number: LT-ELI_LILLY_AND_COMPANY-LT201106004373

PATIENT
  Sex: Female
  Weight: 117 kg

DRUGS (6)
  1. BYETTA [Suspect]
     Dosage: 5 UG, BID
     Dates: start: 20110520, end: 20110522
  2. METFORMIN HCL [Concomitant]
     Dosage: 500 MG, QD
     Dates: start: 20060101
  3. VALSARTAN [Concomitant]
     Dosage: 160 MG, QD
  4. SERETIDE [Concomitant]
     Dosage: UNK, BID
     Dates: start: 19860101
  5. ISMN [Concomitant]
     Dosage: 20 MG, QD
  6. TORSEMIDE [Concomitant]
     Dosage: 10 MG, BID

REACTIONS (2)
  - HYPERSENSITIVITY [None]
  - DYSPNOEA [None]
